FAERS Safety Report 17175824 (Version 1)
Quarter: 2019Q4

REPORT INFORMATION
  Report Type: Spontaneous
  Country: PT (occurrence: PT)
  Receive Date: 20191219
  Receipt Date: 20191219
  Transmission Date: 20200122
  Serious: Yes (Congenital Anomaly, Other)
  Sender: FDA-Public Use
  Company Number: PT-MYLANLABS-2019M1124999

PATIENT
  Age: 15 Year
  Sex: Female

DRUGS (2)
  1. IBUPROFEN. [Suspect]
     Active Substance: IBUPROFEN
     Indication: DYSMENORRHOEA
     Dosage: UNK
     Route: 065
  2. IBUPROFEN. [Suspect]
     Active Substance: IBUPROFEN
     Indication: ABDOMINAL PAIN LOWER

REACTIONS (6)
  - Haematosalpinx [Recovered/Resolved]
  - Congenital genital malformation female [Recovered/Resolved]
  - Vaginal atresia [Recovered/Resolved]
  - Renal aplasia [Recovered/Resolved]
  - Drug ineffective [Not Recovered/Not Resolved]
  - Congenital uterine anomaly [Recovered/Resolved]
